FAERS Safety Report 15809987 (Version 1)
Quarter: 2019Q1

REPORT INFORMATION
  Report Type: Spontaneous
  Country: US (occurrence: US)
  Receive Date: 20190111
  Receipt Date: 20190111
  Transmission Date: 20190417
  Serious: No
  Sender: FDA-Public Use
  Company Number: US-ROCHE-2128550

PATIENT

DRUGS (1)
  1. RITUXAN [Suspect]
     Active Substance: RITUXIMAB
     Indication: SKIN DISORDER
     Dosage: TWO 500MG VIALS
     Route: 042

REACTIONS (3)
  - Intercepted medication error [Unknown]
  - Product preparation issue [Unknown]
  - No adverse event [Unknown]

NARRATIVE: CASE EVENT DATE: 20180517
